FAERS Safety Report 6319857-2 (Version None)
Quarter: 2009Q3

REPORT INFORMATION
  Report Type: 
  Country: None (occurrence: None)
  Receive Date: 20090822
  Receipt Date: 20081008
  Transmission Date: 20100115
  Serious: Yes (Other)
  Sender: FDA-Public Use
  Company Number: US-ABBOTT-08P-163-0480460-00

PATIENT
  Sex: Female

DRUGS (6)
  1. NIASPAN [Suspect]
     Indication: DRUG USE FOR UNKNOWN INDICATION
     Route: 048
     Dates: start: 20081004, end: 20081005
  2. NIASPAN [Suspect]
     Route: 048
     Dates: start: 20080901, end: 20081003
  3. FEXOFENADINE [Concomitant]
     Indication: DRUG USE FOR UNKNOWN INDICATION
     Route: 048
  4. CLINOPRIL [Concomitant]
     Indication: DRUG USE FOR UNKNOWN INDICATION
  5. HYDROCHLOROTHIAZIDE [Concomitant]
     Indication: DRUG USE FOR UNKNOWN INDICATION
     Route: 048
  6. JANUMET [Concomitant]
     Indication: DIABETES MELLITUS
     Dosage: 100/1000 MG- TOTAL DAILY
     Route: 048

REACTIONS (3)
  - ANAPHYLACTIC REACTION [None]
  - RASH [None]
  - SWELLING [None]
